FAERS Safety Report 12393729 (Version 3)
Quarter: 2017Q1

REPORT INFORMATION
  Report Type: Report from Study
  Country: FR (occurrence: FR)
  Receive Date: 20160523
  Receipt Date: 20170110
  Transmission Date: 20170428
  Serious: Yes (Other)
  Sender: FDA-Public Use
  Company Number: FR-ACTELION-A-CH2016-135696

PATIENT
  Age: 61 Year
  Sex: Male
  Weight: 77 kg

DRUGS (1)
  1. VALCHLOR [Suspect]
     Active Substance: MECHLORETHAMINE
     Indication: MYCOSIS FUNGOIDES STAGE I
     Dosage: 3 TIMES WEEKLY
     Route: 061
     Dates: start: 20150106, end: 20160113

REACTIONS (1)
  - Telangiectasia [Recovered/Resolved]

NARRATIVE: CASE EVENT DATE: 20160112
